FAERS Safety Report 24641343 (Version 1)
Quarter: 2024Q4

REPORT INFORMATION
  Report Type: Spontaneous
  Country: US (occurrence: None)
  Receive Date: 20241119
  Receipt Date: 20241119
  Transmission Date: 20250115
  Serious: Yes (Hospitalization)
  Sender: Public
  Company Number: None

PATIENT
  Sex: Female

DRUGS (1)
  1. ORENCIA [Suspect]
     Active Substance: ABATACEPT
     Indication: Rheumatoid arthritis
     Dosage: FREQ: INJECT 1 ML UNDER THE SKIN (SUBCUTANEOUS INJECTION) ONE DAY EVERY WEEK
     Route: 058
     Dates: start: 202411

REACTIONS (3)
  - Loss of personal independence in daily activities [None]
  - Pain [None]
  - Product dose omission issue [None]
